FAERS Safety Report 24362095 (Version 2)
Quarter: 2024Q4

REPORT INFORMATION
  Report Type: Spontaneous
  Country: GB (occurrence: GB)
  Receive Date: 20240925
  Receipt Date: 20241009
  Transmission Date: 20250114
  Serious: Yes (Other)
  Sender: TORRENT
  Company Number: None

PATIENT
  Age: 20 Year
  Sex: Female
  Weight: 71 kg

DRUGS (8)
  1. MONTELUKAST [Suspect]
     Active Substance: MONTELUKAST
     Indication: Product used for unknown indication
     Dosage: ONE TO BE TAKEN AT NIGHT
     Route: 065
     Dates: start: 20240731, end: 20240902
  2. CETIRIZINE [Concomitant]
     Active Substance: CETIRIZINE HYDROCHLORIDE
     Indication: Product used for unknown indication
     Dosage: ONE TO BE TAKEN EACH DAY UPTO 4 TIMES
     Route: 065
     Dates: start: 20240731
  3. CODEINE [Concomitant]
     Active Substance: CODEINE
     Indication: Product used for unknown indication
     Dosage: 1 OR 2 TO BE TAKEN EVERY 4 HOURS WHEN NECESSARY. MAXIMUM 8 IN 24 HOURS
     Route: 065
     Dates: start: 20240624
  4. DERMOL [Concomitant]
     Active Substance: BENZALKONIUM CHLORIDE\CHLORHEXIDINE HYDROCHLORIDE\ISOPROPYL MYRISTATE\PARAFFIN
     Indication: Product used for unknown indication
     Dosage: APPLY AS A SOAP SUBSTITUTE
     Route: 065
     Dates: start: 20240802
  5. LACTULOSE [Concomitant]
     Active Substance: LACTULOSE
     Indication: Product used for unknown indication
     Dosage: TWO 5ML SPOONFULS TO BE TAKEN TWICE A DAY
     Route: 065
     Dates: start: 20240624, end: 20240803
  6. MICONAZOLE [Concomitant]
     Active Substance: MICONAZOLE
     Indication: Product used for unknown indication
     Dosage: APPLY TWICE A DAY- CONTINUE FOR 10DAYS AFTER ALL SKIN LESIONS HAVE HEALED
     Route: 065
     Dates: start: 20240802
  7. MORPHINE [Concomitant]
     Active Substance: MORPHINE
     Indication: Product used for unknown indication
     Dosage: TAKE 2.5ML (5MG) EVERY 4 HOURS AS REQUIRED. MAXIMUM 4 DOSES IN 24 HOURS
     Route: 065
     Dates: start: 20240815
  8. TESTOSTERONE UNDECANOATE [Concomitant]
     Active Substance: TESTOSTERONE UNDECANOATE
     Indication: Product used for unknown indication
     Dosage: LOADING REGIMEN, INJECTION 1 TO BE GIVEN, THEN INJECTION 2 IS 6 WEEK AFTER NUMBER 1..
     Route: 065
     Dates: start: 20240806

REACTIONS (3)
  - Hallucination, visual [Recovered/Resolved]
  - Sleep terror [Recovered/Resolved]
  - Withdrawal syndrome [Recovering/Resolving]

NARRATIVE: CASE EVENT DATE: 20240903
